FAERS Safety Report 5942921-4 (Version None)
Quarter: 2008Q4

REPORT INFORMATION
  Report Type: 
  Country: None (occurrence: None)
  Receive Date: 20081106
  Receipt Date: 20081027
  Transmission Date: 20090506
  Serious: Yes (Death)
  Sender: FDA-Public Use
  Company Number: JP-ABBOTT-08P-087-0482208-00

PATIENT
  Age: 79 Year
  Sex: Male

DRUGS (7)
  1. LEUPROLIDE ACETATE [Suspect]
     Indication: PROSTATE CANCER STAGE II
     Route: 058
     Dates: start: 20070115, end: 20070702
  2. LEUPROLIDE ACETATE [Suspect]
     Route: 058
     Dates: start: 20060515, end: 20061214
  3. BICALUTAMIDE [Concomitant]
     Indication: PROSTATE CANCER STAGE II
     Route: 048
     Dates: start: 20060515, end: 20070803
  4. AMLODIPINE BESYLATE [Concomitant]
     Indication: HYPERTENSION
     Route: 048
  5. AMANTADINE HCL [Concomitant]
     Indication: BRAIN CONTUSION
     Route: 048
  6. THEOPHYLLINE [Concomitant]
     Indication: ASTHMA
     Route: 048
  7. TAMSULOSIN HCL [Concomitant]
     Indication: BENIGN PROSTATIC HYPERPLASIA
     Route: 048
     Dates: start: 20070702, end: 20070803

REACTIONS (1)
  - DEATH [None]
